FAERS Safety Report 4704800-X (Version None)
Quarter: 2005Q2

REPORT INFORMATION
  Report Type: 
  Country: None (occurrence: None)
  Receive Date: 20050630
  Receipt Date: 20050620
  Transmission Date: 20051028
  Serious: Yes (Hospitalization)
  Sender: FDA-Public Use
  Company Number: 215495

PATIENT
  Age: 11 Year
  Sex: Male
  Weight: 26.2 kg

DRUGS (6)
  1. NUTROPIN [Suspect]
     Indication: GROWTH HORMONE DEFICIENCY
     Dosage: 2.2 MG, QD, SUBCUTANEOUS
     Route: 058
     Dates: start: 19950712
  2. COGENTIN [Concomitant]
  3. DEPAKOTE [Concomitant]
  4. DEPAKOTE ER (VALPROIC ACID) [Concomitant]
  5. LITHIUM (LITHIUM NOS) [Concomitant]
  6. RISPERDAL [Concomitant]

REACTIONS (1)
  - AGGRESSION [None]
